FAERS Safety Report 18998247 (Version 1)
Quarter: 2021Q1

REPORT INFORMATION
  Report Type: Spontaneous
  Country: FR (occurrence: FR)
  Receive Date: 20210311
  Receipt Date: 20210311
  Transmission Date: 20210420
  Serious: Yes (Hospitalization, Other)
  Sender: FDA-Public Use
  Company Number: FR-MYLANLABS-2021M1014011

PATIENT
  Age: 51 Year
  Sex: Female

DRUGS (1)
  1. FONDAPARINUX MYLAN [Suspect]
     Active Substance: FONDAPARINUX
     Indication: THROMBOSIS PROPHYLAXIS
     Dosage: 7.5 MILLIGRAM, TOTAL
     Route: 058
     Dates: start: 20210125

REACTIONS (3)
  - Haemoperitoneum [Not Recovered/Not Resolved]
  - Incorrect dosage administered [Unknown]
  - Product prescribing error [Unknown]

NARRATIVE: CASE EVENT DATE: 20210125
